FAERS Safety Report 5254696-5 (Version None)
Quarter: 2007Q1

REPORT INFORMATION
  Report Type: 
  Country: None (occurrence: None)
  Receive Date: 20070227
  Receipt Date: 20070212
  Transmission Date: 20070707
  Serious: Yes (Other)
  Sender: FDA-Public Use
  Company Number: A-US2006-13129

PATIENT
  Age: 63 Year
  Sex: Female
  Weight: 74.8 kg

DRUGS (14)
  1. TRACLEER [Suspect]
     Indication: PULMONARY HYPERTENSION
     Dosage: SEE IMAGE
     Route: 048
     Dates: start: 20030101
  2. SYNTHROID [Concomitant]
  3. PHENOBARBITAL (PHENOBARBITAL SODIUM) [Concomitant]
  4. OXYGEN [Concomitant]
  5. COUMADIN [Concomitant]
  6. LASIX [Concomitant]
  7. METOLAZONE [Concomitant]
  8. POTASSIUM ACETATE [Concomitant]
  9. LOPRESSOR [Concomitant]
  10. IRON [Concomitant]
  11. SPIRIVA [Concomitant]
  12. PRILOSEC [Concomitant]
  13. VIAGRA [Concomitant]
  14. ASCORBIC ACID [Concomitant]

REACTIONS (12)
  - COLONIC POLYP [None]
  - COUGH [None]
  - EPISTAXIS [None]
  - GASTRITIS [None]
  - HAEMATOCHEZIA [None]
  - INAPPROPRIATE SCHEDULE OF DRUG ADMINISTRATION [None]
  - MICROCYTIC ANAEMIA [None]
  - MOUTH HAEMORRHAGE [None]
  - NAUSEA [None]
  - PLATELET COUNT DECREASED [None]
  - TELANGIECTASIA [None]
  - TREATMENT NONCOMPLIANCE [None]
